FAERS Safety Report 7459528-2 (Version None)
Quarter: 2011Q2

REPORT INFORMATION
  Report Type: 
  Country: None (occurrence: None)
  Receive Date: 20110504
  Receipt Date: 20110504
  Transmission Date: 20111010
  Serious: Yes (Death, Life-Threatening, Hospitalization)
  Sender: FDA-Public Use
  Company Number: None

PATIENT
  Age: 42 Year
  Sex: Male
  Weight: 108.9 kg

DRUGS (7)
  1. VANCOMYCIN [Suspect]
     Indication: OSTEOMYELITIS
     Dosage: 1750MG Q 12 HOURS IV
     Route: 042
  2. OXYCODONE HCL [Concomitant]
  3. FOLIC ACID [Concomitant]
  4. BUPROPION [Concomitant]
  5. PANTOPRAZOLE [Concomitant]
  6. FERROUS SULFATE TAB [Concomitant]
  7. ZAPRASIDONE [Concomitant]

REACTIONS (6)
  - ANAPHYLACTIC REACTION [None]
  - CARDIO-RESPIRATORY ARREST [None]
  - HYPOXIC-ISCHAEMIC ENCEPHALOPATHY [None]
  - PULSELESS ELECTRICAL ACTIVITY [None]
  - VENTRICULAR FIBRILLATION [None]
  - PARALYSIS [None]
